FAERS Safety Report 7515058-0 (Version None)
Quarter: 2011Q2

REPORT INFORMATION
  Report Type: 
  Country: None (occurrence: None)
  Receive Date: 20110601
  Receipt Date: 20110526
  Transmission Date: 20111010
  Serious: Yes (Other)
  Sender: FDA-Public Use
  Company Number: FR-ASTELLAS-2011EU003197

PATIENT
  Age: 47 Year
  Sex: Female

DRUGS (3)
  1. PROGRAF [Suspect]
     Indication: LUNG TRANSPLANT
     Dosage: UNK
     Route: 065
  2. CELLCEPT [Concomitant]
     Indication: LUNG TRANSPLANT
     Dosage: UNK
     Route: 065
  3. PREDNISOLONE [Concomitant]
     Indication: LUNG TRANSPLANT
     Dosage: UNK
     Route: 065

REACTIONS (2)
  - RENAL IMPAIRMENT [None]
  - OFF LABEL USE [None]
